FAERS Safety Report 14973335 (Version 1)
Quarter: 2018Q2

REPORT INFORMATION
  Report Type: Spontaneous
  Country: US (occurrence: US)
  Receive Date: 20180605
  Receipt Date: 20180605
  Transmission Date: 20180711
  Serious: No
  Sender: FDA-Public Use
  Company Number: US-TARO-2017TAR00856

PATIENT
  Age: 3 Year
  Sex: Female
  Weight: 17.23 kg

DRUGS (3)
  1. PROBIOTIC VITAMIN [Concomitant]
  2. CHILDRENS CETIRIZINE HYDROCHLORIDE SUGAR FREE GRAPE [Suspect]
     Active Substance: CETIRIZINE HYDROCHLORIDE
     Dosage: UNK, ONCE
     Route: 047
     Dates: start: 20171005, end: 20171005
  3. CHILDRENS CETIRIZINE HYDROCHLORIDE SUGAR FREE GRAPE [Suspect]
     Active Substance: CETIRIZINE HYDROCHLORIDE
     Indication: ALLERGY TO ANIMAL
     Dosage: 2.5 ML, AS NEEDED
     Route: 048
     Dates: start: 2016

REACTIONS (2)
  - Accidental exposure to product [Recovered/Resolved]
  - Cough [Recovered/Resolved]

NARRATIVE: CASE EVENT DATE: 20171005
